FAERS Safety Report 10482028 (Version 1)
Quarter: 2014Q3

REPORT INFORMATION
  Report Type: Spontaneous
  Country: US (occurrence: None)
  Receive Date: 20140925
  Receipt Date: 20140925
  Transmission Date: 20150326
  Serious: Yes (Other)
  Sender: FDA-Public Use
  Company Number: 2009S1006406C

PATIENT
  Age: 53 Year
  Sex: Male

DRUGS (2)
  1. LISINOPRIL. [Concomitant]
     Active Substance: LISINOPRIL
  2. PHOSPHO-SODA [Suspect]
     Active Substance: SODIUM PHOSPHATE, DIBASIC\SODIUM PHOSPHATE, MONOBASIC
     Indication: COLONOSCOPY
     Route: 048
     Dates: start: 20061019

REACTIONS (15)
  - Vomiting [None]
  - Decreased appetite [None]
  - Haemoglobin decreased [None]
  - Nausea [None]
  - Hypertension [None]
  - Nephrocalcinosis [None]
  - Renal osteodystrophy [None]
  - Ageusia [None]
  - Arteriosclerosis [None]
  - Renal failure acute [None]
  - Tubulointerstitial nephritis [None]
  - Glomerulonephritis membranous [None]
  - Hypercoagulation [None]
  - Renal tubular disorder [None]
  - Renal failure chronic [None]

NARRATIVE: CASE EVENT DATE: 20070323
